FAERS Safety Report 5024142-5 (Version None)
Quarter: 2006Q2

REPORT INFORMATION
  Report Type: 
  Country: None (occurrence: None)
  Receive Date: 20060607
  Receipt Date: 20060524
  Transmission Date: 20061013
  Serious: Yes (Hospitalization, Other)
  Sender: FDA-Public Use
  Company Number: 2005123908

PATIENT
  Age: 57 Year
  Sex: Female
  Weight: 83.9154 kg

DRUGS (5)
  1. BEXTRA [Suspect]
     Indication: FOOT FRACTURE
     Dosage: 10 MG (10 MG, 1 IN 1 D),
     Dates: start: 20030101
  2. CELEBREX [Concomitant]
  3. ADVIL [Concomitant]
  4. ASPIRIN [Concomitant]
  5. ACETAMINOPHEN [Concomitant]

REACTIONS (1)
  - CEREBROVASCULAR ACCIDENT [None]
